FAERS Safety Report 5319368-7 (Version None)
Quarter: 2007Q2

REPORT INFORMATION
  Report Type: 
  Country: None (occurrence: None)
  Receive Date: 20070508
  Receipt Date: 20070501
  Transmission Date: 20071010
  Serious: Yes (Hospitalization)
  Sender: FDA-Public Use
  Company Number: US-ELI_LILLY_AND_COMPANY-US200704002416

PATIENT
  Age: 65 Year
  Sex: Female
  Weight: 92.97 kg

DRUGS (6)
  1. HUMALOG [Suspect]
     Indication: DRUG USE FOR UNKNOWN INDICATION
     Dosage: SLIDING SCALE
     Dates: start: 20070424
  2. HUMULIN R [Suspect]
     Indication: DRUG USE FOR UNKNOWN INDICATION
     Dosage: 85 U, EACH MORNING
  3. HUMULIN R [Suspect]
     Dosage: 35 U, AFTERNOON
  4. HUMULIN R [Suspect]
     Dosage: 85 U, EACH EVENING
  5. LANTUS [Concomitant]
     Indication: DRUG USE FOR UNKNOWN INDICATION
     Dosage: 46 U, DAILY (1/D)
     Dates: start: 20070324
  6. COUMADIN [Concomitant]
     Indication: DRUG USE FOR UNKNOWN INDICATION
     Dates: start: 20060101

REACTIONS (8)
  - ACTIVATED PARTIAL THROMBOPLASTIN TIME PROLONGED [None]
  - ARRHYTHMIA [None]
  - BLOOD CHOLESTEROL INCREASED [None]
  - BLOOD GLUCOSE INCREASED [None]
  - CEREBROVASCULAR ACCIDENT [None]
  - INCORRECT DOSE ADMINISTERED [None]
  - VISION BLURRED [None]
  - VISUAL ACUITY REDUCED [None]
